FAERS Safety Report 7464539-7 (Version None)
Quarter: 2011Q2

REPORT INFORMATION
  Report Type: 
  Country: None (occurrence: None)
  Receive Date: 20110428
  Receipt Date: 20110408
  Transmission Date: 20111010
  Serious: Yes (Hospitalization)
  Sender: FDA-Public Use
  Company Number: JPI-P-014585

PATIENT
  Age: 44 Year
  Sex: Female

DRUGS (2)
  1. XYREM [Suspect]
     Indication: NARCOLEPSY
     Dosage: 9 GM (4.5 GM, 2 IN 1 D), ORAL 3 GM (1.5 GM, 2 IN 1 D), ORAL
     Route: 048
     Dates: start: 20110307, end: 20110301
  2. XYREM [Suspect]
     Indication: NARCOLEPSY
     Dosage: 9 GM (4.5 GM, 2 IN 1 D), ORAL 3 GM (1.5 GM, 2 IN 1 D), ORAL
     Route: 048
     Dates: start: 20110301, end: 20110323

REACTIONS (17)
  - LOSS OF CONSCIOUSNESS [None]
  - NAUSEA [None]
  - URINARY TRACT INFECTION [None]
  - VOMITING [None]
  - BLOOD POTASSIUM DECREASED [None]
  - TOOTHACHE [None]
  - HEADACHE [None]
  - DIZZINESS [None]
  - FACE INJURY [None]
  - THINKING ABNORMAL [None]
  - MEMORY IMPAIRMENT [None]
  - ABNORMAL BEHAVIOUR [None]
  - MUSCULAR WEAKNESS [None]
  - OEDEMA PERIPHERAL [None]
  - TOOTH LOSS [None]
  - FALL [None]
  - BLOOD BILIRUBIN ABNORMAL [None]
